FAERS Safety Report 5112244-4 (Version None)
Quarter: 2006Q3

REPORT INFORMATION
  Report Type: 
  Country: None (occurrence: None)
  Receive Date: 20060922
  Receipt Date: 20060523
  Transmission Date: 20061208
  Serious: No
  Sender: FDA-Public Use
  Company Number: US-GLAXOSMITHKLINE-A0606632A

PATIENT
  Sex: Female

DRUGS (1)
  1. ABREVA [Suspect]
     Indication: DRUG USE FOR UNKNOWN INDICATION
     Dates: start: 20060523

REACTIONS (3)
  - DRUG ADMINISTRATION ERROR [None]
  - EYE IRRITATION [None]
  - EYE PAIN [None]
